FAERS Safety Report 20200865 (Version 1)
Quarter: 2021Q4

REPORT INFORMATION
  Report Type: Spontaneous
  Country: US (occurrence: None)
  Receive Date: 20211217
  Receipt Date: 20211217
  Transmission Date: 20220303
  Serious: No
  Sender: FDA-Public Use
  Company Number: None

PATIENT

DRUGS (3)
  1. ETOPOSIDE [Suspect]
     Active Substance: ETOPOSIDE
     Route: 042
  2. METHOTREXATE [Suspect]
     Active Substance: METHOTREXATE
  3. MITOMYCIN [Suspect]
     Active Substance: MITOMYCIN

REACTIONS (4)
  - Product packaging confusion [None]
  - Product name confusion [None]
  - Product label confusion [None]
  - Product barcode issue [None]
